FAERS Safety Report 24043108 (Version 1)
Quarter: 2024Q3

REPORT INFORMATION
  Report Type: Report from Study
  Country: US (occurrence: US)
  Receive Date: 20240702
  Receipt Date: 20240702
  Transmission Date: 20241017
  Serious: Yes (Other)
  Sender: MERCK
  Company Number: US-009507513-2406USA009176

PATIENT
  Sex: Female

DRUGS (3)
  1. SOTATERCEPT [Suspect]
     Active Substance: SOTATERCEPT
     Indication: Pulmonary arterial hypertension
     Dosage: 1.6 MILLILITER, Q3W, STRENGTH: 45 MG
     Route: 058
     Dates: start: 202405
  2. OPSUMIT [Concomitant]
     Active Substance: MACITENTAN
  3. UPTRAVI [Concomitant]
     Active Substance: SELEXIPAG

REACTIONS (9)
  - Diarrhoea haemorrhagic [Unknown]
  - Diarrhoea [Unknown]
  - Constipation [Unknown]
  - Mineral supplementation [Recovered/Resolved]
  - Injection site pain [Unknown]
  - Decreased appetite [Unknown]
  - Arthralgia [Unknown]
  - Dizziness [Unknown]
  - Dyspnoea exertional [Unknown]

NARRATIVE: CASE EVENT DATE: 20240101
